FAERS Safety Report 18105872 (Version 2)
Quarter: 2020Q3

REPORT INFORMATION
  Report Type: Report from Study
  Country: PT (occurrence: PT)
  Receive Date: 20200804
  Receipt Date: 20200811
  Transmission Date: 20201104
  Serious: Yes (Other)
  Sender: FDA-Public Use
  Company Number: PT-AUROBINDO-AUR-APL-2020-037139

PATIENT
  Age: 37 Year
  Sex: Female

DRUGS (14)
  1. NIFEDIPINE. [Suspect]
     Active Substance: NIFEDIPINE
     Indication: TOCOLYSIS
     Dosage: UNK
     Route: 065
     Dates: start: 2013
  2. DARBEPOETIN ALFA [Suspect]
     Active Substance: DARBEPOETIN ALFA
     Dosage: PROGRESSIVE INCREASE IN DOSE
     Route: 065
     Dates: end: 2013
  3. ALLOPURINOL. [Suspect]
     Active Substance: ALLOPURINOL
     Indication: PRODUCT USED FOR UNKNOWN INDICATION
     Dosage: 100 MILLIGRAM, DAILY
     Route: 065
     Dates: end: 2013
  4. SERTRALINE [Suspect]
     Active Substance: SERTRALINE HYDROCHLORIDE
     Indication: PRODUCT USED FOR UNKNOWN INDICATION
     Dosage: 50 MILLIGRAM, DAILY
     Route: 065
  5. BETAMETHASONE. [Suspect]
     Active Substance: BETAMETHASONE
     Indication: MATERNAL THERAPY TO ENHANCE FOETAL LUNG MATURITY
     Dosage: UNK
     Route: 065
     Dates: start: 2013
  6. METHYLDOPA. [Suspect]
     Active Substance: METHYLDOPA
     Dosage: 1500 MILLIGRAM, DAILY
     Route: 065
     Dates: start: 2013
  7. FOLIC ACID. [Suspect]
     Active Substance: FOLIC ACID
     Indication: PRODUCT USED FOR UNKNOWN INDICATION
     Dosage: 5 MILLIGRAM, ONCE A DAY
     Route: 065
  8. ROSUVASTATIN. [Suspect]
     Active Substance: ROSUVASTATIN
     Indication: PRODUCT USED FOR UNKNOWN INDICATION
     Dosage: 20 MILLIGRAM, DAILY
     Route: 065
     Dates: end: 2013
  9. ACETYLSALICYLIC ACID [Suspect]
     Active Substance: ASPIRIN
     Indication: PRODUCT USED FOR UNKNOWN INDICATION
     Dosage: 100 MILLIGRAM, DAILY
     Route: 065
     Dates: start: 2013
  10. FERROUS SULFATE. [Suspect]
     Active Substance: FERROUS SULFATE
     Indication: PRODUCT USED FOR UNKNOWN INDICATION
     Dosage: UNK
     Route: 065
  11. DARBEPOETIN ALFA [Suspect]
     Active Substance: DARBEPOETIN ALFA
     Indication: PRODUCT USED FOR UNKNOWN INDICATION
     Dosage: 100 MICROGRAM, EVERY WEEK, (AT THE END OF PREGNANCY)
     Route: 065
     Dates: start: 2013
  12. METHYLDOPA. [Suspect]
     Active Substance: METHYLDOPA
     Indication: HYPERTENSION
     Dosage: 750 MILLIGRAM, DAILY
     Route: 065
     Dates: start: 2013, end: 2013
  13. AMITRIPTYLINE [Suspect]
     Active Substance: AMITRIPTYLINE
     Indication: PRODUCT USED FOR UNKNOWN INDICATION
     Dosage: 10 MILLIGRAM, DAILY
     Route: 065
     Dates: end: 2013
  14. VITAMIN B COMPLEX [Suspect]
     Active Substance: CYANOCOBALAMIN\DEXPANTHENOL\NIACINAMIDE\PYRIDOXINE HYDROCHLORIDE\RIBOFLAVIN 5^-PHOSPHATE SODIUM\THIAMINE HYDROCHLORIDE\VITAMIN B COMPLEX
     Indication: PRODUCT USED FOR UNKNOWN INDICATION
     Dosage: UNKNOWN
     Route: 065

REACTIONS (8)
  - Urinary tract infection [Unknown]
  - Haemoperitoneum [Unknown]
  - Azotaemia [Unknown]
  - Hypertension [Unknown]
  - Premature labour [Unknown]
  - Maternal exposure during pregnancy [Recovered/Resolved]
  - Abdominal distension [Unknown]
  - Maternal condition affecting foetus [Unknown]

NARRATIVE: CASE EVENT DATE: 2013
